FAERS Safety Report 14369608 (Version 1)
Quarter: 2018Q1

REPORT INFORMATION
  Report Type: Spontaneous
  Country: GB (occurrence: GB)
  Receive Date: 20180110
  Receipt Date: 20180110
  Transmission Date: 20180509
  Serious: Yes (Other)
  Sender: FDA-Public Use
  Company Number: GB-ALVOGEN-2018-ALVOGEN-094766

PATIENT
  Sex: Female

DRUGS (3)
  1. CARBIMAZOLE [Concomitant]
     Active Substance: CARBIMAZOLE
     Indication: THYROID DISORDER
  2. ATENOLOL. [Suspect]
     Active Substance: ATENOLOL
     Indication: TACHYCARDIA
     Dosage: GENERIC 50 MILLIGRAMS DAILY.
     Route: 048
  3. TENORMIN [Suspect]
     Active Substance: ATENOLOL
     Indication: TACHYCARDIA
     Route: 048
     Dates: start: 1987

REACTIONS (4)
  - Neoplasm malignant [Unknown]
  - Drug ineffective [Unknown]
  - Tachycardia [Unknown]
  - Product substitution issue [Unknown]

NARRATIVE: CASE EVENT DATE: 2014
